FAERS Safety Report 9171857 (Version 1)
Quarter: 2013Q1

REPORT INFORMATION
  Report Type: Spontaneous
  Country: RU (occurrence: RU)
  Receive Date: 20130319
  Receipt Date: 20130319
  Transmission Date: 20140127
  Serious: Yes (Death)
  Sender: FDA-Public Use
  Company Number: RU-ASTRAZENECA-2013SE17719

PATIENT
  Age: 27624 Day
  Sex: Female
  Weight: 70 kg

DRUGS (13)
  1. BRILINTA [Suspect]
     Indication: ACUTE CORONARY SYNDROME
     Route: 048
     Dates: start: 20130202, end: 20130210
  2. ASPIRIN [Concomitant]
     Indication: CORONARY ARTERY DISEASE
     Route: 048
     Dates: start: 20130202, end: 20130212
  3. ASPIRIN [Concomitant]
     Indication: MYOCARDIAL INFARCTION
     Route: 048
     Dates: start: 20130202, end: 20130212
  4. MORPHINE [Concomitant]
     Indication: CORONARY ARTERY DISEASE
     Route: 042
  5. MORPHINE [Concomitant]
     Indication: MYOCARDIAL INFARCTION
     Route: 042
  6. NITROGLYCERIN [Concomitant]
     Indication: CORONARY ARTERY DISEASE
     Route: 042
  7. NITROGLYCERIN [Concomitant]
     Indication: MYOCARDIAL INFARCTION
     Route: 042
  8. FRAXIPARINE [Concomitant]
     Indication: CORONARY ARTERY DISEASE
     Route: 058
     Dates: start: 20130202, end: 20130212
  9. FRAXIPARINE [Concomitant]
     Indication: MYOCARDIAL INFARCTION
     Route: 058
     Dates: start: 20130202, end: 20130212
  10. ZYLLT [Concomitant]
     Route: 048
  11. HEPARIN [Concomitant]
     Route: 058
  12. INSULIN [Concomitant]
  13. PLAVIX [Concomitant]
     Dates: start: 20130210, end: 20130212

REACTIONS (2)
  - Aortic thrombosis [Fatal]
  - Peripheral artery thrombosis [Fatal]
